FAERS Safety Report 8387138-1 (Version None)
Quarter: 2012Q2

REPORT INFORMATION
  Report Type: 
  Country: None (occurrence: None)
  Receive Date: 20120525
  Receipt Date: 20120517
  Transmission Date: 20120825
  Serious: Yes (Other)
  Sender: FDA-Public Use
  Company Number: JP-VERTEX PHARMACEUTICALS INC.-AE-2012-006057

PATIENT
  Age: 65 Year
  Sex: Male

DRUGS (7)
  1. RIBAVIRIN [Concomitant]
     Route: 048
     Dates: start: 20120322, end: 20120328
  2. FAMOTIDINE D [Concomitant]
     Route: 048
     Dates: start: 20120301
  3. PEGINTERFERON ALFA-2B [Concomitant]
     Indication: HEPATITIS C
     Route: 051
     Dates: start: 20120301
  4. TELAVIC (TELAPREVIR) [Suspect]
     Indication: HEPATITIS C
     Route: 048
     Dates: start: 20120301
  5. RIBAVIRIN [Concomitant]
     Indication: HEPATITIS C
     Route: 048
     Dates: start: 20120301, end: 20120321
  6. LENDORMIN D [Concomitant]
     Route: 048
     Dates: start: 20120322
  7. RIBAVIRIN [Concomitant]
     Route: 048
     Dates: start: 20120329

REACTIONS (1)
  - SKIN EXFOLIATION [None]
